FAERS Safety Report 8869956 (Version 1)
Quarter: 2012Q4

REPORT INFORMATION
  Report Type: 
  Country: US (occurrence: US)
  Receive Date: 20121026
  Receipt Date: 20121026
  Transmission Date: 20130627
  Serious: No
  Sender: FDA-Public Use
  Company Number: US-AMGEN-USASP2012044009

PATIENT
  Age: 66 Year
  Sex: Female

DRUGS (8)
  1. ENBREL [Suspect]
     Indication: PRODUCT USED FOR UNKNOWN INDICATION
     Dosage: 50 mg, qwk
     Route: 058
  2. IMURAN                             /00001501/ [Concomitant]
     Dosage: 50 mg, UNK
  3. PREDNISONE [Concomitant]
     Dosage: 1 mg, UNK
  4. PRAVACHOL [Concomitant]
     Dosage: 10 mg, UNK
  5. VICODIN [Concomitant]
     Dosage: 5-500 mg
  6. AMLODIPINE [Concomitant]
     Dosage: 5 mg, UNK
  7. ZIAC [Concomitant]
     Dosage: 5-6.25 mg
  8. CITALOPRAM [Concomitant]
     Dosage: 20 mg, UNK

REACTIONS (1)
  - Eye inflammation [Unknown]
